FAERS Safety Report 25270513 (Version 5)
Quarter: 2025Q2

REPORT INFORMATION
  Report Type: Spontaneous
  Country: JP (occurrence: JP)
  Receive Date: 20250505
  Receipt Date: 20250604
  Transmission Date: 20250716
  Serious: Yes (Death, Hospitalization, Other)
  Sender: JOHNSON AND JOHNSON
  Company Number: JP-JNJFOC-20250402158

PATIENT
  Age: 80 Year
  Sex: Male
  Weight: 57.0 kg

DRUGS (15)
  1. RYBREVANT [Suspect]
     Active Substance: AMIVANTAMAB-VMJW
     Indication: EGFR gene mutation
     Dosage: C1DAY1
     Route: 041
     Dates: start: 20250221, end: 20250221
  2. RYBREVANT [Suspect]
     Active Substance: AMIVANTAMAB-VMJW
     Route: 041
     Dates: start: 20250307, end: 20250307
  3. RYBREVANT [Suspect]
     Active Substance: AMIVANTAMAB-VMJW
     Dosage: C2DAY1
     Route: 041
     Dates: start: 20250418, end: 20250418
  4. CARBOPLATIN [Suspect]
     Active Substance: CARBOPLATIN
     Indication: EGFR gene mutation
     Route: 041
     Dates: start: 20250221, end: 2025
  5. CARBOPLATIN [Suspect]
     Active Substance: CARBOPLATIN
     Dosage: AUC5, 415MG
     Route: 041
     Dates: start: 20250418, end: 20250418
  6. PEMETREXED [Suspect]
     Active Substance: PEMETREXED
     Indication: EGFR gene mutation
     Route: 041
     Dates: start: 20250221, end: 2025
  7. PEMETREXED [Suspect]
     Active Substance: PEMETREXED
     Dosage: 820MG
     Route: 041
     Dates: start: 20250418, end: 20250418
  8. FOLIC ACID [Concomitant]
     Active Substance: FOLIC ACID
     Indication: EGFR gene mutation
     Route: 048
     Dates: start: 20241213
  9. LOXOPROFEN SODIUM DIHYDRATE [Concomitant]
     Active Substance: LOXOPROFEN SODIUM DIHYDRATE
     Indication: EGFR gene mutation
     Route: 048
  10. CALCIUM CARBONATE\CHOLECALCIFEROL\MAGNESIUM CARBONATE [Concomitant]
     Active Substance: CALCIUM CARBONATE\CHOLECALCIFEROL\MAGNESIUM CARBONATE
     Indication: EGFR gene mutation
     Route: 048
     Dates: start: 20241227
  11. CARBOCYSTEINE [Concomitant]
     Active Substance: CARBOCYSTEINE
     Indication: EGFR gene mutation
     Route: 048
  12. FEBUXOSTAT [Concomitant]
     Active Substance: FEBUXOSTAT
     Indication: Hyperuricaemia
     Route: 048
  13. LUSEOGLIFLOZIN [Concomitant]
     Active Substance: LUSEOGLIFLOZIN
     Indication: Type 2 diabetes mellitus
     Route: 048
  14. SUCRALFATE [Concomitant]
     Active Substance: SUCRALFATE
     Indication: Peptic ulcer
     Route: 048
  15. ESOMEPRAZOLE MAGNESIUM [Concomitant]
     Active Substance: ESOMEPRAZOLE MAGNESIUM
     Indication: Peptic ulcer
     Route: 048

REACTIONS (10)
  - Lung adenocarcinoma [Fatal]
  - Embolism venous [Unknown]
  - Myelosuppression [Recovered/Resolved]
  - Pneumonia bacterial [Recovered/Resolved]
  - Presyncope [Unknown]
  - Off label use [Unknown]
  - Dermatitis acneiform [Recovering/Resolving]
  - Infusion related reaction [Recovered/Resolved]
  - Orthostatic hypotension [Recovered/Resolved]
  - COVID-19 [Unknown]

NARRATIVE: CASE EVENT DATE: 20250101
